FAERS Safety Report 6636570-2 (Version None)
Quarter: 2010Q1

REPORT INFORMATION
  Report Type: 
  Country: None (occurrence: None)
  Receive Date: 20100226
  Receipt Date: 20100115
  Transmission Date: 20100710
  Serious: Yes (Other)
  Sender: FDA-Public Use
  Company Number: 218253USA

PATIENT
  Age: 52 Year
  Sex: Female
  Weight: 81.1939 kg

DRUGS (2)
  1. ADDERALL 10 [Suspect]
     Indication: ATTENTION DEFICIT/HYPERACTIVITY DISORDER
     Dosage: 15 MG (5 MG, 3 IN 1 D), ORAL
     Route: 048
     Dates: start: 20071107, end: 20091101
  2. OBETROL [Suspect]
     Indication: ATTENTION DEFICIT/HYPERACTIVITY DISORDER
     Dosage: 30 MG (30 MG, 1 IN 1 D), ORAL
     Route: 048
     Dates: start: 20060703, end: 20091101

REACTIONS (2)
  - CARDIOMYOPATHY [None]
  - HYPERKALAEMIA [None]
